FAERS Safety Report 5743613-7 (Version None)
Quarter: 2008Q2

REPORT INFORMATION
  Report Type: 
  Country: None (occurrence: None)
  Receive Date: 20080519
  Receipt Date: 20080519
  Transmission Date: 20081010
  Serious: Yes (Other)
  Sender: FDA-Public Use
  Company Number: None

PATIENT
  Sex: Female
  Weight: 20.8655 kg

DRUGS (2)
  1. SINGULAIR [Suspect]
     Indication: RESPIRATORY DISORDER
     Dosage: 4MG ONCE A DAY PO
     Route: 048
     Dates: start: 20080201, end: 20080301
  2. SINGULAIR [Suspect]
     Indication: SEASONAL ALLERGY
     Dosage: 4MG ONCE A DAY PO
     Route: 048
     Dates: start: 20080201, end: 20080301

REACTIONS (8)
  - ABNORMAL BEHAVIOUR [None]
  - AGGRESSION [None]
  - ANGER [None]
  - DEPRESSED MOOD [None]
  - FEAR [None]
  - FEELING ABNORMAL [None]
  - MOOD SWINGS [None]
  - NO REACTION ON PREVIOUS EXPOSURE TO DRUG [None]
